FAERS Safety Report 8296487-7 (Version None)
Quarter: 2012Q2

REPORT INFORMATION
  Report Type: 
  Country: None (occurrence: None)
  Receive Date: 20120418
  Receipt Date: 20120409
  Transmission Date: 20120825
  Serious: No
  Sender: FDA-Public Use
  Company Number: US-BAYER-2012-035568

PATIENT
  Age: 79 Year
  Sex: Male

DRUGS (2)
  1. EOVIST [Suspect]
     Indication: HEPATIC LESION
  2. EOVIST [Suspect]
     Indication: NUCLEAR MAGNETIC RESONANCE IMAGING
     Dosage: 18 ML, ONCE
     Dates: start: 20120406, end: 20120406

REACTIONS (1)
  - NO ADVERSE EVENT [None]
